FAERS Safety Report 8144046-9 (Version None)
Quarter: 2012Q1

REPORT INFORMATION
  Report Type: 
  Country: None (occurrence: None)
  Receive Date: 20120217
  Receipt Date: 20120217
  Transmission Date: 20120608
  Serious: Yes (Other)
  Sender: FDA-Public Use
  Company Number: None

PATIENT
  Age: 5 Year
  Sex: Male
  Weight: 22.679 kg

DRUGS (2)
  1. SINGULAIR [Suspect]
     Indication: ASTHMA
     Dosage: 4 MG
     Route: 048
     Dates: start: 20110206, end: 20111203
  2. SINGULAIR [Suspect]
     Indication: MULTIPLE ALLERGIES
     Dosage: 4 MG
     Route: 048
     Dates: start: 20110206, end: 20111203

REACTIONS (8)
  - MENTAL DISORDER [None]
  - SCHOOL REFUSAL [None]
  - SCRATCH [None]
  - ANXIETY [None]
  - ABNORMAL BEHAVIOUR [None]
  - OBSESSIVE THOUGHTS [None]
  - SELF INJURIOUS BEHAVIOUR [None]
  - CRYING [None]
